FAERS Safety Report 6568863-1 (Version None)
Quarter: 2010Q1

REPORT INFORMATION
  Report Type: 
  Country: None (occurrence: None)
  Receive Date: 20100203
  Receipt Date: 20100104
  Transmission Date: 20100710
  Serious: Yes (Death)
  Sender: FDA-Public Use
  Company Number: US-BAYER-201013519GPV

PATIENT
  Age: 37 Year
  Sex: Female

DRUGS (3)
  1. NIFEDIPINE [Suspect]
  2. BACLOFEN [Suspect]
  3. ACETAMINOPHEN W/ PROPOXYPHENE HCL [Suspect]

REACTIONS (1)
  - DRUG TOXICITY [None]
